FAERS Safety Report 18606071 (Version 1)
Quarter: 2020Q4

REPORT INFORMATION
  Report Type: Report from Study
  Country: CA (occurrence: CA)
  Receive Date: 20201211
  Receipt Date: 20201211
  Transmission Date: 20210114
  Serious: Yes (Hospitalization, Other)
  Sender: FDA-Public Use
  Company Number: CA-SHIRE-CA201930318AA

PATIENT
  Sex: Female

DRUGS (1)
  1. HUMAN NORMAL IMMUNOGLOBULIN; LIQUID 20 [Suspect]
     Active Substance: HUMAN IMMUNOGLOBULIN G
     Indication: SECONDARY IMMUNODEFICIENCY
     Dosage: 8 GRAM, 1X/WEEK
     Route: 058
     Dates: start: 20180910

REACTIONS (6)
  - Sepsis [Recovering/Resolving]
  - Infection [Unknown]
  - Therapy interrupted [Unknown]
  - Product availability issue [Unknown]
  - Cardiac disorder [Unknown]
  - Arthritis [Unknown]
